FAERS Safety Report 9358179 (Version 1)
Quarter: 2013Q2

REPORT INFORMATION
  Report Type: Spontaneous
  Country: CA (occurrence: CA)
  Receive Date: 20130620
  Receipt Date: 20130620
  Transmission Date: 20140414
  Serious: Yes (Hospitalization, Other)
  Sender: FDA-Public Use
  Company Number: CA-PFIZER INC-2013182334

PATIENT
  Age: 47 Year
  Sex: Male
  Weight: 145 kg

DRUGS (137)
  1. LOMOTIL [Concomitant]
  2. MS CONTIN [Suspect]
     Indication: PAIN
     Dosage: 80 MG, 3X/DAY
     Route: 065
  3. MORPHINE SULFATE [Suspect]
     Indication: PAIN
     Dosage: 5 MG, AS NEEDED
     Route: 065
  4. MS IR [Suspect]
     Indication: PAIN
     Dosage: 10 MG, UNK
     Route: 065
  5. OXYNEO [Suspect]
     Indication: PANCREATITIS RELAPSING
     Dosage: 700 MG, DAILY
     Route: 065
     Dates: start: 2012
  6. OXYNEO [Suspect]
     Indication: ABDOMINAL PAIN
     Dosage: UNK, TID
     Route: 065
  7. OXYNEO [Suspect]
     Indication: BACK PAIN
     Dosage: 120 MG, 4X/DAY
     Route: 065
  8. OXYNEO [Suspect]
     Dosage: 160 MG, Q8H
     Route: 048
  9. OXYCONTIN [Suspect]
     Indication: PANCREATITIS RELAPSING
     Dosage: UNK
     Route: 065
     Dates: start: 1998, end: 2012
  10. OXYCONTIN [Suspect]
     Indication: ABDOMINAL PAIN
     Dosage: 700 MG, 1X/DAY
     Route: 065
     Dates: end: 2012
  11. OXYCONTIN [Suspect]
     Indication: BACK PAIN
     Dosage: 160 MG, 4X/DAY
     Route: 066
  12. OXYCONTIN [Suspect]
     Dosage: 160 MG, Q8H
     Route: 065
  13. OXYCONTIN [Suspect]
     Dosage: 140 MG, 4X/DAY
     Route: 065
  14. OXYCONTIN [Suspect]
     Dosage: 140 MG, 4X/DAY
     Route: 065
  15. OXYCONTIN [Suspect]
     Dosage: 120 MG, 3X/DAY
     Route: 066
  16. OXYCONTIN [Suspect]
     Dosage: 110 MG, 3X/DAY
     Route: 065
  17. OXYCONTIN [Suspect]
     Dosage: 100 MG, 3X/DAY
     Route: 065
  18. OXYCONTIN [Suspect]
     Dosage: 90 MG, 2X/DAY
     Route: 065
     Dates: start: 20030609
  19. OXYCONTIN [Suspect]
     Dosage: 80 MG, 3X/DAY
     Route: 065
  20. OXYCONTIN [Suspect]
     Dosage: 80 MG, 2X/DAY
     Route: 065
  21. OXYCONTIN [Suspect]
     Dosage: 80 MG, UNK
     Route: 065
     Dates: start: 20080114, end: 20110223
  22. OXYCONTIN [Suspect]
     Dosage: 60 MG, 3X/DAY
     Route: 065
  23. OXYCONTIN [Suspect]
     Dosage: 60 MG, UNK
     Route: 065
     Dates: start: 20100302, end: 20100624
  24. OXYCONTIN [Suspect]
     Dosage: 40 MG, 3X/DAY
     Route: 065
     Dates: start: 200708
  25. OXYCONTIN [Suspect]
     Dosage: 40 MG, 2X/DAY
     Route: 065
  26. OXYCONTIN [Suspect]
     Dosage: 40 MG, 1X/DAY
     Route: 065
  27. OXYCONTIN [Suspect]
     Dosage: 40 MG, UNK
     Route: 065
     Dates: start: 20070815, end: 20110303
  28. OXYCONTIN [Suspect]
     Dosage: 30 MG, 3X/DAY
     Route: 065
  29. OXYCONTIN [Suspect]
     Dosage: 30 MG, 2X/DAY
     Route: 065
  30. OXYCONTIN [Suspect]
     Dosage: 20 MG, 4X/DAY
     Route: 065
  31. OXYCONTIN [Suspect]
     Dosage: 20 MG, 1X/DAY
     Route: 065
  32. OXYCONTIN [Suspect]
     Dosage: 20 MG, UNK
     Route: 065
     Dates: start: 20070414, end: 20100921
  33. OXYCONTIN [Suspect]
     Dosage: 10 MG, UNK
     Route: 065
     Dates: start: 20071031, end: 20071129
  34. OXYIR [Suspect]
     Indication: BREAKTHROUGH PAIN
     Dosage: 20 MG QID, AS NEEDED
     Route: 048
  35. OXYIR [Suspect]
     Dosage: 20 MG, 3X/DAY
     Route: 065
  36. OXYIR [Suspect]
     Dosage: 20 MG, UNK
     Route: 065
     Dates: start: 20091125, end: 20091208
  37. OXYIR [Suspect]
     Dosage: 15 MG, 4X/DAY
     Route: 065
  38. OXYIR [Suspect]
     Dosage: 10 MG, Q6-8H
     Route: 065
  39. OXYIR [Suspect]
     Dosage: 10 MG, 3X/DAY
     Route: 065
  40. OXYIR [Suspect]
     Dosage: 10 MG, 2X/DAY
     Route: 065
  41. OXYIR [Suspect]
     Dosage: 10 MG, UNK
     Route: 065
     Dates: start: 20070414, end: 20080213
  42. OXYIR [Suspect]
     Dosage: 5 MG, 1X/DAY
     Route: 065
  43. OXYIR [Suspect]
     Dosage: 5 MG, 3X/DAY
     Route: 065
  44. HYDROMORPH CONTIN [Suspect]
     Indication: PAIN
     Dosage: 36 MG, 3X/DAY
     Route: 065
  45. HYDROMORPH CONTIN [Suspect]
     Dosage: 18 MG, UNK
     Route: 065
     Dates: start: 20100317, end: 20101112
  46. HYDROMORPH CONTIN [Suspect]
     Dosage: 12 MG, 3X/DAY
     Route: 065
  47. HYDROMORPH CONTIN [Suspect]
     Dosage: 12 MG, UNK
     Route: 065
     Dates: start: 20070724, end: 20070802
  48. HYDROMORPH CONTIN [Suspect]
     Dosage: 6 MG, UNK
     Route: 065
     Dates: start: 20100918, end: 20101017
  49. HYDROMORPH CONTIN [Suspect]
     Dosage: 2 UNK, Q8H
     Route: 065
  50. DILAUDID [Suspect]
     Indication: PAIN
     Dosage: 12 MG, 3X/DAY
     Route: 065
  51. HYDROMORPHONE HYDROCHLORIDE [Suspect]
     Indication: PAIN
     Dosage: 20 MG, UNK
     Route: 065
  52. HYDROMORPHONE HYDROCHLORIDE [Suspect]
     Dosage: 16 MG, 4X/DAY
     Route: 065
  53. PMS-HYDROMORPHONE [Suspect]
     Indication: PAIN
     Dosage: 8 MG, UNK
     Route: 065
     Dates: start: 20100317, end: 20101029
  54. PMS-HYDROMORPHONE [Suspect]
     Dosage: 4 MG, UNK
     Route: 065
     Dates: start: 20090904, end: 20091216
  55. PMS-HYDROMORPHONE [Suspect]
     Dosage: 12 MG, 4X/DAY
     Route: 065
  56. PMS-OXYCODONE [Suspect]
     Indication: PAIN
     Dosage: 20 MG Q4H, AS NEEDED
     Route: 065
  57. PMS-OXYCODONE [Suspect]
     Dosage: 20 MG, UNK
     Route: 065
     Dates: start: 20100122, end: 20101015
  58. PMS-OXYCODONE [Suspect]
     Dosage: 10 MG, UNK
     Route: 065
     Dates: start: 20100102, end: 20100210
  59. SUPEUDOL [Suspect]
     Indication: PAIN
     Dosage: 20 MG, 4X/DAY
     Route: 065
  60. SUPEUDOL [Suspect]
     Dosage: 20 MG, UNK
     Route: 065
     Dates: start: 20101025, end: 20101123
  61. SUPEUDOL [Suspect]
     Dosage: 10 MG, UNK
     Route: 065
     Dates: start: 20100501, end: 20110303
  62. SUPEUDOL [Suspect]
     Dosage: 10 MG, 4X/DAY
     Route: 065
  63. RATIO-OXYCOCET [Suspect]
     Indication: PAIN
     Dosage: UNK
     Route: 065
     Dates: start: 20100423, end: 20100522
  64. OXYCODONE/APAP [Suspect]
     Indication: PAIN
     Dosage: UNK
     Route: 065
     Dates: start: 20100405, end: 20100504
  65. DURAGESIC [Suspect]
     Indication: PAIN
     Dosage: 100 UG, Q1H
     Route: 065
  66. DURAGESIC [Suspect]
     Dosage: 125 UG, Q1H
     Route: 065
  67. RATIO-FENTANYL [Suspect]
     Indication: PAIN
     Dosage: 100 UG, Q1H
     Route: 065
     Dates: start: 20110119, end: 20110124
  68. RATIO-FENTANYL [Suspect]
     Dosage: 25 UG, Q1H
     Route: 065
     Dates: start: 20110119, end: 20110124
  69. FENTANYL SANDOZ MAT [Suspect]
     Indication: PAIN
     Dosage: 100 UG, Q1H
     Route: 065
     Dates: start: 20100918, end: 20101017
  70. DEMEROL [Suspect]
     Indication: PAIN
     Dosage: 100 MG, AS NEEDED
     Route: 065
  71. DEMEROL [Suspect]
     Dosage: 100 MG, HS
     Route: 030
  72. DOM-GABAPENTIN [Concomitant]
     Dosage: UNK
     Dates: start: 20100918, end: 20101112
  73. LEVEMIR [Concomitant]
     Dosage: UNK
     Dates: start: 20090916, end: 20110319
  74. NOVORAPID [Concomitant]
     Dosage: UNK
     Dates: start: 20070419, end: 20110319
  75. ONE TOUCH [Concomitant]
     Dosage: UNK
     Dates: start: 20071207, end: 20080125
  76. HUMULIN R [Concomitant]
  77. HUMULIN N [Concomitant]
     Dosage: UNK
     Dates: start: 20070630, end: 20080212
  78. INSULIN, REGULAR [Concomitant]
     Dosage: UNK
  79. PANTOLOC [Concomitant]
     Dosage: UNK
     Dates: start: 20060718, end: 20071009
  80. HUMALOG [Concomitant]
     Dosage: UNK
  81. VICTOZA [Concomitant]
  82. METFORMIN [Concomitant]
  83. INSULIN N [Concomitant]
  84. SLOW-K [Concomitant]
     Dosage: UNK
     Dates: start: 20100824, end: 20101116
  85. POTASSIUM CHLORIDE [Concomitant]
  86. ZAROXOLYN [Concomitant]
     Dosage: UNK
     Dates: start: 20070910, end: 20110209
  87. NOVO-SPIROTON [Concomitant]
     Dosage: UNK
     Dates: start: 20101018, end: 20110209
  88. ALDACTONE [Concomitant]
     Dosage: UNK
     Dates: start: 20091114, end: 20101015
  89. FUROSEMIDE [Concomitant]
  90. NU-FUROSEMIDE [Concomitant]
     Dosage: UNK
     Dates: start: 20091114, end: 20101201
  91. APO-CLINDAMYCIN [Concomitant]
     Dosage: UNK
     Dates: start: 20100925, end: 20101004
  92. METRONIDAZOLE [Concomitant]
     Dosage: UNK
     Dates: start: 20100925, end: 20101004
  93. NORTRIPTYLINE [Concomitant]
     Dosage: UNK
     Dates: start: 20100918, end: 20101017
  94. RAMIPRIL [Concomitant]
     Dosage: UNK
     Dates: start: 20101018, end: 20101205
  95. ALTACE [Concomitant]
     Dosage: UNK
     Dates: start: 20101004, end: 20101107
  96. APO-RAMIPRIL [Concomitant]
     Dosage: UNK
     Dates: start: 20101004, end: 20101107
  97. RAN-RAMIPRIL [Concomitant]
  98. BENADRYL [Concomitant]
     Dosage: UNK
     Dates: start: 20100824, end: 20100912
  99. PMS-CIPROFLOXACIN [Concomitant]
     Dosage: UNK
     Dates: start: 20100823, end: 20100827
  100. NU-COTRIMOX DS [Concomitant]
     Dosage: UNK
     Dates: start: 20100805, end: 20100814
  101. CHAMPIX [Concomitant]
     Dosage: UNK
     Dates: start: 20110218, end: 20110303
  102. CRESTOR [Concomitant]
     Dosage: UNK
     Dates: start: 20100324, end: 20101205
  103. ELAVIL [Concomitant]
     Dosage: UNK
     Dates: start: 20100405, end: 20100504
  104. DIPROSALIC [Concomitant]
     Dosage: UNK
     Dates: start: 20100324, end: 20100422
  105. DIAZEPAM [Concomitant]
  106. PMS-LORAZEPAM [Concomitant]
     Dosage: UNK
     Dates: start: 20071231, end: 20080109
  107. LORAZEPAM [Concomitant]
  108. ATIVAN [Concomitant]
  109. NOVO-CLINDAMYCIN [Concomitant]
     Dosage: UNK
     Dates: start: 20071218, end: 2009
  110. LOVENOX [Concomitant]
     Dosage: UNK
     Dates: start: 20070726, end: 20070824
  111. GEN-WARFARIN [Concomitant]
     Dosage: UNK
     Dates: start: 20070723, end: 20070801
  112. NIACIN [Concomitant]
  113. LIPIDIL [Concomitant]
  114. EZETROL [Concomitant]
  115. LIPITOR [Concomitant]
  116. GEMFIBROZIL [Concomitant]
  117. LOPERAMIDE [Concomitant]
  118. SEROQUEL [Concomitant]
  119. NICODERM [Concomitant]
  120. NICOTINE POLACRILEX [Concomitant]
  121. NIASPAN [Concomitant]
  122. ASPIRIN [Concomitant]
  123. RISPERDAL [Concomitant]
  124. IBUPROFEN [Concomitant]
  125. NU-RANIT [Concomitant]
     Dosage: UNK
     Dates: start: 20100324, end: 20100910
  126. PMS-RANITIDINE [Concomitant]
  127. ZANTAC [Concomitant]
  128. CREON 10 [Concomitant]
     Dosage: UNK
     Dates: start: 20101202, end: 20101231
  129. CREON 25000 [Concomitant]
  130. FENOFIBRATE [Concomitant]
  131. DOMPERIDONE [Concomitant]
  132. DOM-BACLOFEN [Concomitant]
     Dosage: UNK
     Dates: start: 20070804, end: 20070806
  133. TYLENOL EXTRA STRENGTH [Concomitant]
  134. PROCTOSEDYL [Concomitant]
  135. APO-FUROSEMIDE [Concomitant]
  136. DICETEL [Concomitant]
  137. STEMETIL [Concomitant]

REACTIONS (69)
  - Accidental overdose [Unknown]
  - Depressed level of consciousness [Unknown]
  - Metabolic encephalopathy [Unknown]
  - Respiratory depression [Unknown]
  - Prerenal failure [Unknown]
  - Drug dependence [Unknown]
  - Substance abuse [Unknown]
  - Drug withdrawal syndrome [Unknown]
  - Cellulitis [Unknown]
  - Lymphoedema [Unknown]
  - Abdominal pain [Unknown]
  - Off label use [Unknown]
  - Pain [Unknown]
  - Drug tolerance increased [Unknown]
  - Oedema peripheral [Unknown]
  - Quality of life decreased [Unknown]
  - Stress [Unknown]
  - Dyskinesia [Unknown]
  - Hyperventilation [Unknown]
  - Headache [Unknown]
  - Diarrhoea [Unknown]
  - Feeling of body temperature change [Unknown]
  - Anxiety [Unknown]
  - Irritability [Unknown]
  - Agitation [Unknown]
  - Drug ineffective [Unknown]
  - Impaired work ability [Unknown]
  - Skin ulcer [Unknown]
  - Stasis dermatitis [Unknown]
  - Obesity [Unknown]
  - Fluid retention [Unknown]
  - Eczema [Unknown]
  - Hyperhidrosis [Unknown]
  - Malaise [Unknown]
  - Piloerection [Unknown]
  - Pruritus generalised [Unknown]
  - Inflammation [Unknown]
  - Vomiting [Unknown]
  - Urinary tract obstruction [Unknown]
  - Confusional state [Unknown]
  - Somnolence [Unknown]
  - Hiccups [Unknown]
  - Dyspnoea [Unknown]
  - Deep vein thrombosis [Unknown]
  - Pulmonary embolism [Unknown]
  - Cholecystitis [Unknown]
  - Azotaemia [Unknown]
  - Duodenitis [Unknown]
  - Jaundice cholestatic [Unknown]
  - Hypertriglyceridaemia [Unknown]
  - Hypercholesterolaemia [Unknown]
  - Nausea [Unknown]
  - Orthopnoea [Unknown]
  - Hyperlipidaemia [Unknown]
  - Hepatic steatosis [Unknown]
  - Dyslipidaemia [Unknown]
  - Osteoarthritis [Unknown]
  - Chronic obstructive pulmonary disease [Unknown]
  - Pancreatic mass [Unknown]
  - Erosive duodenitis [Unknown]
  - Pancreatic cyst [Unknown]
  - Varicose vein [Unknown]
  - Liver function test abnormal [Unknown]
  - Hyperbilirubinaemia [Unknown]
  - Sleep apnoea syndrome [Unknown]
  - Venous insufficiency [Unknown]
  - Diabetes mellitus [Unknown]
  - Tobacco user [Unknown]
  - Tobacco abuse [Unknown]
